FAERS Safety Report 9390026 (Version 2)
Quarter: 2013Q3

REPORT INFORMATION
  Report Type: Spontaneous
  Country: US (occurrence: US)
  Receive Date: 20130708
  Receipt Date: 20130904
  Transmission Date: 20140515
  Serious: Yes (Other)
  Sender: FDA-Public Use
  Company Number: US-AMGEN-USASP2013045442

PATIENT
  Age: 58 Year
  Sex: Female
  Weight: 54.88 kg

DRUGS (66)
  1. ENBREL [Suspect]
     Indication: RHEUMATOID ARTHRITIS
     Dosage: 25 MG, 2 TIMES/WK
     Route: 058
     Dates: start: 20031208
  2. HUMIRA [Concomitant]
     Dosage: 40 MG, EVERY OTHER WEEK AS DIRECTED
     Route: 058
     Dates: start: 20040213, end: 20081121
  3. HUMIRA [Concomitant]
     Dosage: 40 MG, EVERY OTHER WEEK AS DIRECTED
     Route: 058
     Dates: start: 20090107, end: 20130312
  4. ORENCIA [Concomitant]
     Dosage: UNK
  5. ROCEPHIN [Concomitant]
     Dosage: 1 G, UNK
     Route: 030
     Dates: start: 20110513
  6. KEFLEX                             /00145501/ [Concomitant]
     Dosage: 500 MG, TID
     Route: 048
     Dates: start: 20120817, end: 20121025
  7. CYANOCOBALAMIN [Concomitant]
     Dosage: 1000 MUG/ML, QMO
     Route: 030
     Dates: start: 20110218, end: 20110218
  8. DEPO-MEDROL [Concomitant]
     Dosage: 80 MG/ML, INJECT 1ML ONCE
     Dates: start: 20041215, end: 20050921
  9. DEPO-MEDROL [Concomitant]
     Dosage: 80 MG/ML, INJECT 1ML ONCE
     Dates: start: 20071026, end: 20071210
  10. FOLIC ACID [Concomitant]
     Dosage: 1 MG, QD
     Route: 048
     Dates: start: 20040126, end: 20121025
  11. VICODIN ES [Concomitant]
     Indication: PAIN
     Dosage: 5-325MG,1TO 2TABLETS EVERY 4 TO 6 HOURS
     Route: 048
     Dates: start: 20111223, end: 20130528
  12. VICODIN ES [Concomitant]
     Dosage: 7.5-750 MG 1 TABLET TWICE DAILY AS NEEDED.
     Route: 048
     Dates: start: 20080612, end: 20090321
  13. VICODIN ES [Concomitant]
     Dosage: 10-325 MG ORAL TABLET
     Route: 048
     Dates: start: 20111013, end: 20120622
  14. LEVOQUIN [Concomitant]
     Dosage: 250 MG,1TABLET DAILY
     Route: 048
     Dates: start: 20071211, end: 20080605
  15. LEVOQUIN [Concomitant]
     Dosage: 250 MG,1TABLET DAILY
     Route: 048
     Dates: start: 20060816, end: 20060821
  16. MECLIZINE HCL [Concomitant]
     Dosage: 25 MG, 1 TABLET EVERY 6 HOURS AS NEEDED
     Route: 048
     Dates: start: 20120622, end: 20121025
  17. NITROFURANTOIN MONOHYDRATE/MACROCRYSTALS [Concomitant]
     Dosage: 100 MG, BID
     Route: 048
     Dates: start: 20111114, end: 20121025
  18. NITROFURANTOIN MONOHYDRATE/MACROCRYSTALS [Concomitant]
     Dosage: 100 MG, TWICE DAILY, FOR 10 DAYS
     Route: 048
     Dates: start: 20070907, end: 20080211
  19. NITROFURANTOIN MONOHYDRATE/MACROCRYSTALS [Concomitant]
     Dosage: 100 MG, UNK
     Route: 048
     Dates: start: 20060825, end: 20061004
  20. PROMETHAZINE HCL [Concomitant]
     Indication: NAUSEA
     Dosage: 6.25 MG/5ML, 2TSP EVERY 6 HOURS
     Route: 048
     Dates: start: 20080211, end: 20080605
  21. TYLENOL WITH CODEINE [Concomitant]
     Dosage: 300-30 MG ORAL TABLET EVERY 4 TO 6 HOURS AS NEEDED.
     Route: 048
     Dates: start: 20070816, end: 20090416
  22. ACTONEL [Concomitant]
     Dosage: 35 MG, QWK
     Route: 048
     Dates: start: 20031208, end: 20040607
  23. XANAX [Concomitant]
     Dosage: 0.25 MG, 1 TABLET TWICE DAILY AS NEEDED
     Route: 048
     Dates: start: 20051019, end: 20061004
  24. AMBIEN [Concomitant]
     Dosage: 10 MG, 1 TABLET BEDTIME
     Route: 048
     Dates: start: 20050131, end: 20051003
  25. AMBIEN [Concomitant]
     Dosage: 6.25 MG, UNK
     Route: 048
     Dates: start: 20060118, end: 20080211
  26. ELAVIL                             /00002202/ [Concomitant]
     Dosage: 10 MG, 1 TABLET DAILY AT BEDTIME
     Route: 048
     Dates: start: 20041215, end: 20060117
  27. ELAVIL                             /00002202/ [Concomitant]
     Dosage: 10 MG, 1 TABLET DAILY AT BEDTIME
     Route: 048
     Dates: start: 20061016, end: 20080211
  28. AMMONIUM LACTATE [Concomitant]
     Dosage: 12 %, ONCE TO TWICE DAILY
     Dates: start: 20110131, end: 20110426
  29. AVELOX                             /01278901/ [Concomitant]
     Dosage: 400 MG, QD
     Route: 048
     Dates: start: 20080211, end: 20080724
  30. BACTROBAN                          /00753901/ [Concomitant]
     Dosage: 2 %, TID
     Dates: start: 20040922, end: 20051003
  31. BACTROBAN                          /00753901/ [Concomitant]
     Dosage: 2 %, TID
     Dates: start: 20090427, end: 20091117
  32. CEFADROXIL [Concomitant]
     Dosage: 500 MG, BID FOR 10 DAYS
     Route: 048
     Dates: start: 20090526, end: 20090619
  33. CELEBREX [Concomitant]
     Dosage: 200 MG, BID
     Route: 048
     Dates: start: 20040126, end: 20041221
  34. CILOXAN [Concomitant]
     Dosage: 0.3 %, UNK OPHTHALMIC SOLUTION
     Dates: start: 20100217, end: 20100806
  35. CILOXAN [Concomitant]
     Dosage: 250 MG, BID FOR FIVE DAYS
     Route: 048
     Dates: start: 20071214, end: 20080211
  36. CILOXAN [Concomitant]
     Dosage: 250 MG, BID
     Dates: start: 20060821, end: 20061004
  37. CLOTRIMAZOLE AND BETAMETHASONE DIPROPIONATE [Concomitant]
     Dosage: 1-0.05% CREAM TWICE DAILY
     Dates: start: 20101018, end: 20110426
  38. DOXYCYCLINE HYCLATE [Concomitant]
     Dosage: 100 MG, BID
     Route: 048
     Dates: start: 20110513, end: 20110919
  39. HYDROQUINONE [Concomitant]
     Dosage: 4 %, BID
     Dates: start: 20110131, end: 20110426
  40. ARAVA [Concomitant]
     Dosage: 20 MG, QD
     Route: 048
     Dates: start: 20070219, end: 20070515
  41. ARAVA [Concomitant]
     Dosage: 20 MG, QD
     Route: 048
     Dates: start: 20110628, end: 20110919
  42. LIDODERM [Concomitant]
     Dosage: 5 %, USE UPTO 12 HRS A DAY
     Dates: start: 20090427, end: 20091117
  43. LIDODERM [Concomitant]
     Dosage: 5 %, USE UPTO 12 HRS A DAY
     Dates: start: 20110929, end: 20111025
  44. METHOTREXATE [Concomitant]
     Dosage: 2.5 MG, 7 TABLETS PER WEEK
     Route: 048
     Dates: start: 20040204, end: 20060621
  45. METHOTREXATE [Concomitant]
     Dosage: 2.5 MG, 7 TABLETS PER WEEK
     Route: 048
     Dates: start: 20060621, end: 20070219
  46. METHOTREXATE [Concomitant]
     Dosage: 2.5 MG, 7 TABLETS PER WEEK
     Route: 048
     Dates: start: 20070515, end: 20090416
  47. METHOTREXATE [Concomitant]
     Dosage: 2.5 MG, 7 TABLETS PER WEEK
     Route: 048
     Dates: start: 20100405, end: 20110628
  48. METOPROLOL TARTRATE [Concomitant]
     Dosage: 100 MG, BID
     Route: 048
     Dates: start: 20101221, end: 20101221
  49. METOPROLOL TARTRATE [Concomitant]
     Dosage: 50 MG, BID
     Route: 048
     Dates: start: 20101221, end: 20110919
  50. OXYCONTIN [Concomitant]
     Indication: PAIN
     Dosage: 5 MG, 1-2 TABLETS EVERY 4 TO 6
     Route: 048
     Dates: start: 20120113, end: 20120430
  51. OXYCONTIN [Concomitant]
     Dosage: 5 MG, 1-2 TABLETS EVERY 4 TO 6
     Route: 048
     Dates: start: 20111028, end: 20120430
  52. OXYCONTIN [Concomitant]
     Dosage: 10 MG, UNK
     Route: 048
     Dates: end: 20120430
  53. OXYCODONE AND ACETAMINOPHEN [Concomitant]
     Dosage: UNK,5-325 MG
     Route: 048
     Dates: end: 20120430
  54. PROCHLORPERAZINE MALEATE [Concomitant]
     Indication: PAIN
     Dosage: 10 MG, 1 TABLET EVERY 6 HOURS PRN
     Route: 048
     Dates: start: 20100114, end: 20100806
  55. DARVOCET-N [Concomitant]
     Indication: PAIN
     Dosage: 100-625 MG, 1 TABLET 4 TO 6 HOURS
     Dates: start: 20090427, end: 20101210
  56. DARVOCET-N [Concomitant]
     Dosage: 100-625 MG, 1 TABLET 4 TO 6 HOURS
     Dates: start: 20090526, end: 20091117
  57. SULFASALAZINE [Concomitant]
     Dosage: 500 MG, 3 TABLET TWICE DAILY
     Route: 048
     Dates: start: 20060523, end: 20070416
  58. SULFASALAZINE [Concomitant]
     Dosage: 500 MG, 3 TABLET TWICE DAILY
     Route: 048
     Dates: start: 20130102, end: 20130312
  59. SULINDAC [Concomitant]
     Dosage: 200 MG, 1 TABLET EVERY 12 HOURS
     Route: 048
     Dates: start: 20080917, end: 20090416
  60. SULINDAC [Concomitant]
     Dosage: 200 MG, BID
     Route: 048
     Dates: start: 20041221, end: 20070116
  61. TRAZODONE HCL [Concomitant]
     Dosage: 50 MG, 1 TABLET AT BEDTIME
     Route: 048
     Dates: start: 20041221, end: 20050921
  62. ULTRACET [Concomitant]
     Dosage: 37.5-325MG, 1TABLET EVERY 4 TO 6 HOURS
     Route: 048
     Dates: start: 20050630, end: 20051003
  63. ULTRACET [Concomitant]
     Dosage: 37.5-325MG, 1TABLET EVERY 4 TO 6 HOURS
     Route: 048
     Dates: start: 20050513, end: 20090416
  64. EFFEXOR [Concomitant]
     Dosage: 75 MG, BID
     Route: 048
     Dates: start: 20081211, end: 20090416
  65. TOBRADEX [Concomitant]
     Dosage: UNK, 0.3-0.1% EVERY 4 HOURS DAILY
     Dates: start: 20070731, end: 20080211
  66. COMPRO [Concomitant]
     Dosage: 25 MG, BID
     Route: 054
     Dates: start: 20111103, end: 20121025

REACTIONS (6)
  - Conjunctivitis [Recovering/Resolving]
  - Swelling [Not Recovered/Not Resolved]
  - Visual impairment [Recovering/Resolving]
  - Nodule [Not Recovered/Not Resolved]
  - Adverse event [Recovered/Resolved]
  - Pneumonia [Recovered/Resolved]
